FAERS Safety Report 21113791 (Version 2)
Quarter: 2022Q4

REPORT INFORMATION
  Report Type: Spontaneous
  Country: US (occurrence: US)
  Receive Date: 20220721
  Receipt Date: 20221007
  Transmission Date: 20230113
  Serious: No
  Sender: FDA-Public Use
  Company Number: US-JNJFOC-20220724018

PATIENT
  Age: 51 Year
  Sex: Female
  Weight: 74.910 kg

DRUGS (9)
  1. ELMIRON [Suspect]
     Active Substance: PENTOSAN POLYSULFATE SODIUM
     Indication: Cystitis interstitial
     Dosage: LAST ADMINISTRATION WAS ON 07-MAR-2019?30 DAYS SUPPLIES
     Route: 048
     Dates: start: 20130722, end: 20190307
  2. ELMIRON [Suspect]
     Active Substance: PENTOSAN POLYSULFATE SODIUM
     Route: 048
     Dates: end: 20190317
  3. PYRIDIUM [Suspect]
     Active Substance: PHENAZOPYRIDINE
     Indication: Cystitis interstitial
     Dosage: LITTLE RED PILL
     Route: 065
     Dates: start: 2013
  4. VIVELLE-DOT [Concomitant]
     Active Substance: ESTRADIOL
     Indication: Hot flush
     Route: 065
     Dates: end: 20130708
  5. HYDROCHLOROTHIAZIDE [Concomitant]
     Active Substance: HYDROCHLOROTHIAZIDE
     Indication: Blood pressure measurement
     Dosage: 12.5
     Route: 065
  6. ISOSORBE [Concomitant]
     Indication: Angina pectoris
     Route: 065
  7. DILTIAZEM [Concomitant]
     Active Substance: DILTIAZEM
     Indication: Angina pectoris
     Route: 065
  8. PANTOPRAZOLE [Concomitant]
     Active Substance: PANTOPRAZOLE
     Indication: Gastrooesophageal reflux disease
     Route: 065
  9. ASPIRIN [Concomitant]
     Active Substance: ASPIRIN
     Indication: Angina pectoris
     Route: 065

REACTIONS (8)
  - Phlebitis [Unknown]
  - Adverse event [Unknown]
  - Visual impairment [Unknown]
  - Alopecia [Unknown]
  - Product dose omission issue [Unknown]
  - Weight abnormal [Unknown]
  - Vision blurred [Not Recovered/Not Resolved]
  - Photophobia [Not Recovered/Not Resolved]

NARRATIVE: CASE EVENT DATE: 20130722
